FAERS Safety Report 4374428-2 (Version None)
Quarter: 2004Q2

REPORT INFORMATION
  Report Type: 
  Country: None (occurrence: None)
  Receive Date: 20040607
  Receipt Date: 20040607
  Transmission Date: 20050107
  Serious: Yes (Hospitalization)
  Sender: FDA-Public Use
  Company Number: None

PATIENT
  Sex: Male
  Weight: 65.318 kg

DRUGS (8)
  1. IRESSA [Suspect]
     Indication: OROPHARYNGEAL CANCER STAGE UNSPECIFIED
     Dosage: 250 MG QD
     Dates: start: 20040503, end: 20040602
  2. CISPLATIN [Suspect]
     Indication: OROPHARYNGEAL CANCER STAGE UNSPECIFIED
     Dosage: 60 MG/M2 Q3 WEEKS
     Dates: start: 20040503, end: 20040602
  3. VASOTEC [Concomitant]
  4. COREG [Concomitant]
  5. ACTOS [Concomitant]
  6. ALDACTONE [Concomitant]
  7. DIGOXIN [Concomitant]
  8. GLYBURIDE [Concomitant]

REACTIONS (1)
  - DEHYDRATION [None]
